FAERS Safety Report 8250464-0 (Version None)
Quarter: 2012Q2

REPORT INFORMATION
  Report Type: 
  Country: None (occurrence: None)
  Receive Date: 20120402
  Receipt Date: 20120402
  Transmission Date: 20120825
  Serious: Yes (Other)
  Sender: FDA-Public Use
  Company Number: None

PATIENT
  Sex: Female
  Weight: 95.254 kg

DRUGS (1)
  1. GEODON [Suspect]
     Indication: ANXIETY
     Route: 048
     Dates: start: 20120320, end: 20120320

REACTIONS (11)
  - IRRITABILITY [None]
  - URTICARIA [None]
  - ABNORMAL DREAMS [None]
  - DYSPNOEA [None]
  - RASH [None]
  - HYPERSENSITIVITY [None]
  - SWELLING FACE [None]
  - SKIN IRRITATION [None]
  - SLEEP DISORDER [None]
  - EYE SWELLING [None]
  - PRURITUS [None]
